FAERS Safety Report 6170882-4 (Version None)
Quarter: 2009Q2

REPORT INFORMATION
  Report Type: 
  Country: None (occurrence: None)
  Receive Date: 20090427
  Receipt Date: 20090422
  Transmission Date: 20091009
  Serious: Yes (Death, Other)
  Sender: FDA-Public Use
  Company Number: 2009SP008047

PATIENT
  Age: 51 Year
  Sex: Male
  Weight: 106.5953 kg

DRUGS (11)
  1. PEG-INTRON [Suspect]
     Indication: HEPATITIS C
     Dosage: 80 MCG; QW; SC
     Route: 058
     Dates: start: 20080910, end: 20090415
  2. REBETOL [Suspect]
     Indication: HEPATITIS C
     Dosage: 600 MG; BID; PO
     Route: 048
     Dates: start: 20080910, end: 20090415
  3. PROCRIT [Suspect]
     Indication: ANAEMIA
     Dosage: QW; SC
     Route: 058
     Dates: start: 20090224, end: 20090415
  4. CIPROFLOXACIN [Concomitant]
  5. ESOMEPRAZOLE MAGNESIUM [Concomitant]
  6. HYDROXYZINE [Concomitant]
  7. LOPERAMIDE HCL [Concomitant]
  8. MOMETASONE FUROATE [Concomitant]
  9. PROPRANOLOL [Concomitant]
  10. TRAZODONE HCL [Concomitant]
  11. ZINC SULFATE [Concomitant]

REACTIONS (3)
  - ANAEMIA [None]
  - BACK PAIN [None]
  - UNRESPONSIVE TO STIMULI [None]
